FAERS Safety Report 22381016 (Version 1)
Quarter: 2023Q2

REPORT INFORMATION
  Report Type: Other
  Country: GB (occurrence: GB)
  Receive Date: 20230530
  Receipt Date: 20230530
  Transmission Date: 20230721
  Serious: Yes (Other)
  Sender: FDA-Public Use
  Company Number: GB-MACLEODS PHARMA EU LTD-MAC2023041052

PATIENT

DRUGS (3)
  1. TENOFOVIR [Interacting]
     Active Substance: TENOFOVIR
     Indication: HIV infection
     Dosage: UNK
     Route: 048
     Dates: start: 2008
  2. EFAVIRENZ [Interacting]
     Active Substance: EFAVIRENZ
     Indication: HIV infection
     Dosage: UNK
     Route: 048
     Dates: start: 2008
  3. EMTRICITABINE [Interacting]
     Active Substance: EMTRICITABINE
     Indication: HIV infection
     Dosage: UNK
     Route: 048
     Dates: start: 2008

REACTIONS (2)
  - Nervous system disorder [Unknown]
  - Drug interaction [Unknown]
